FAERS Safety Report 9124386 (Version 4)
Quarter: 2013Q2

REPORT INFORMATION
  Report Type: Spontaneous
  Country: US (occurrence: US)
  Receive Date: 20130227
  Receipt Date: 20130417
  Transmission Date: 20140414
  Serious: Yes (Hospitalization, Other)
  Sender: FDA-Public Use
  Company Number: US-JNJFOC-20130214971

PATIENT
  Age: 33 Year
  Sex: Female

DRUGS (17)
  1. REMICADE [Suspect]
     Indication: SPONDYLOARTHROPATHY
     Dosage: FIRST DOSE, DOSE: 5MG/KG
     Route: 042
     Dates: start: 20130118
  2. REMICADE [Suspect]
     Indication: SPONDYLOARTHROPATHY
     Dosage: SECOND DOSE, DOSE: 5MG/KG
     Route: 042
     Dates: start: 20130215, end: 20130215
  3. REMICADE [Suspect]
     Indication: ANKYLOSING SPONDYLITIS
     Dosage: FIRST DOSE, DOSE: 5MG/KG
     Route: 042
     Dates: start: 20130118
  4. REMICADE [Suspect]
     Indication: ANKYLOSING SPONDYLITIS
     Dosage: SECOND DOSE, DOSE: 5MG/KG
     Route: 042
     Dates: start: 20130215, end: 20130215
  5. ALBUTEROL [Concomitant]
     Route: 065
  6. CALCIUM CITRATE W/COLECALCIFEROL [Concomitant]
     Dosage: AT NOON
     Route: 048
  7. CULTURELLE [Concomitant]
     Dosage: AT NOON
     Route: 048
  8. ENBREL [Concomitant]
     Route: 058
  9. ESOMEPRAZOLE [Concomitant]
     Route: 048
  10. FLUOXETINE [Concomitant]
     Route: 048
  11. HYDROCHLOROTHIAZIDE [Concomitant]
     Route: 048
  12. LOSARTAN [Concomitant]
     Route: 048
  13. METFORMIN [Concomitant]
     Route: 048
  14. NEURONTIN [Concomitant]
     Route: 048
  15. PERCOCET [Concomitant]
     Dosage: 5/325 RECOMMENDED FOR 30 DAYS, 7.5/325 AS NECESSARY
     Route: 048
  16. SIMVASTATIN [Concomitant]
     Dosage: EVERY NIGHT
     Route: 048
  17. TYLENOL [Concomitant]
     Dosage: AS NECESSARY
     Route: 048

REACTIONS (13)
  - Infusion related reaction [Unknown]
  - Hypertension [Recovered/Resolved]
  - Dyspnoea [Recovered/Resolved]
  - Chest discomfort [Recovered/Resolved]
  - Blood immunoglobulin E increased [Unknown]
  - Panic disorder [Recovered/Resolved]
  - Bronchitis [Recovered/Resolved]
  - Anxiety [Recovered/Resolved]
  - Feeling hot [Recovered/Resolved]
  - Flushing [Recovered/Resolved]
  - Urticaria [Recovered/Resolved]
  - Rash [Recovered/Resolved]
  - Erythema [Recovered/Resolved]
